FAERS Safety Report 9517089 (Version 4)
Quarter: 2013Q4

REPORT INFORMATION
  Report Type: Spontaneous
  Country: US (occurrence: US)
  Receive Date: 20130911
  Receipt Date: 20131129
  Transmission Date: 20140711
  Serious: Yes (Life-Threatening, Other)
  Sender: FDA-Public Use
  Company Number: US-PFIZER INC-2013132992

PATIENT
  Age: 33 Year
  Sex: Female

DRUGS (10)
  1. DILANTIN-125 [Suspect]
     Indication: CONVULSION
     Dosage: 100 MG, 3X/DAY
     Dates: start: 19980228
  2. DILANTIN-125 [Suspect]
     Dosage: 300 MG, 1X/DAY AT BEDTIME
     Route: 048
     Dates: start: 19980312
  3. DILANTIN-125 [Suspect]
     Dosage: 200 MG, 3X/DAY
     Route: 048
     Dates: start: 19980428, end: 199805
  4. DILANTIN-125 [Suspect]
     Dosage: 100 MG, 1X/DAY
     Route: 048
     Dates: start: 19991025
  5. DILANTIN-125 [Suspect]
     Dosage: 200 MG, 1X/DAY
     Route: 048
     Dates: start: 19991027
  6. DILANTIN-125 [Suspect]
     Dosage: 100 MG, 3X/DAY
     Route: 048
     Dates: start: 19991220, end: 19991224
  7. SYNTHROID [Concomitant]
     Indication: HYPOTHYROIDISM
     Dosage: 50 MG, UNK
     Dates: start: 19991220
  8. DEPAKOTE [Concomitant]
     Dosage: 250 MG, 4X/DAY
     Dates: start: 19991220
  9. CALCIUM CITRATE [Concomitant]
     Dosage: 600 MG, 3X/DAY
     Dates: start: 19991220
  10. ROCALTROL [Concomitant]
     Dosage: 0.25 UG, UNK
     Dates: start: 19991220

REACTIONS (2)
  - Stevens-Johnson syndrome [Recovering/Resolving]
  - Toxic epidermal necrolysis [Recovering/Resolving]
